FAERS Safety Report 10039419 (Version 1)
Quarter: 2014Q1

REPORT INFORMATION
  Report Type: Spontaneous
  Country: GB (occurrence: GB)
  Receive Date: 20140326
  Receipt Date: 20140326
  Transmission Date: 20141002
  Serious: Yes (Other)
  Sender: FDA-Public Use
  Company Number: PHHY2014GB031536

PATIENT
  Age: 66 Year
  Sex: Male
  Weight: 69 kg

DRUGS (6)
  1. BISOPROLOL [Suspect]
     Dates: start: 20131212
  2. ALLOPURINOL [Concomitant]
     Dates: start: 20131212, end: 20140227
  3. ASPIRIN [Concomitant]
     Dates: start: 20131212, end: 20140227
  4. CLOPIDOGREL [Concomitant]
     Dates: start: 20131121, end: 20140227
  5. RAMIPRIL [Concomitant]
     Dates: start: 20131121
  6. SIMVASTATIN [Concomitant]
     Dates: start: 20131203

REACTIONS (1)
  - Vasospasm [Recovered/Resolved]
